FAERS Safety Report 25500941 (Version 1)
Quarter: 2025Q3

REPORT INFORMATION
  Report Type: Spontaneous
  Country: EU (occurrence: EU)
  Receive Date: 20250701
  Receipt Date: 20250701
  Transmission Date: 20251021
  Serious: Yes (Other)
  Sender: ANI
  Company Number: EU-ANIPHARMA-2025-NL-000010

PATIENT
  Age: 69 Year
  Sex: Male

DRUGS (1)
  1. BICALUTAMIDE [Suspect]
     Active Substance: BICALUTAMIDE
     Indication: Prostate cancer
     Route: 048
     Dates: start: 20130301, end: 2016

REACTIONS (3)
  - Gynaecomastia [Not Recovered/Not Resolved]
  - Breast cancer male [Unknown]
  - Breast pain [Not Recovered/Not Resolved]
